FAERS Safety Report 11046392 (Version 3)
Quarter: 2015Q3

REPORT INFORMATION
  Report Type: Report from Study
  Country: BR (occurrence: BR)
  Receive Date: 20150420
  Receipt Date: 20150806
  Transmission Date: 20151125
  Serious: Yes (Hospitalization, Other)
  Sender: FDA-Public Use
  Company Number: BR-ROCHE-1564876

PATIENT
  Age: 38 Year
  Sex: Female
  Weight: 102 kg

DRUGS (14)
  1. RIVOTRIL [Concomitant]
     Active Substance: CLONAZEPAM
     Route: 065
  2. SAPHRIS [Concomitant]
     Active Substance: ASENAPINE MALEATE
  3. CHLORPROMAZINE. [Concomitant]
     Active Substance: CHLORPROMAZINE
     Route: 065
  4. SIMVASTATIN. [Concomitant]
     Active Substance: SIMVASTATIN
     Route: 065
  5. XOLAIR [Suspect]
     Active Substance: OMALIZUMAB
     Dosage: 4 AMPOULES A MONTH
     Route: 058
  6. SERTRALINE [Concomitant]
     Active Substance: SERTRALINE HYDROCHLORIDE
     Route: 065
  7. INDAPEN [Concomitant]
     Active Substance: INDAPAMIDE
     Route: 065
  8. RISPERIDONE. [Concomitant]
     Active Substance: RISPERIDONE
     Route: 065
  9. DEPAKENE [Concomitant]
     Active Substance: VALPROIC ACID
     Route: 065
  10. LYRICA [Concomitant]
     Active Substance: PREGABALIN
     Route: 065
  11. PURAN [Concomitant]
     Active Substance: LEVOTHYROXINE SODIUM
  12. VALPROIC ACID. [Concomitant]
     Active Substance: VALPROIC ACID
     Route: 065
  13. XOLAIR [Suspect]
     Active Substance: OMALIZUMAB
     Indication: ASTHMA
     Route: 058
  14. CARBAMAZEPINE. [Concomitant]
     Active Substance: CARBAMAZEPINE
     Route: 065

REACTIONS (23)
  - Cold sweat [Unknown]
  - Asthma [Recovered/Resolved]
  - Nasal discharge discolouration [Recovered/Resolved]
  - Sleep disorder [Unknown]
  - Implant site pain [Recovering/Resolving]
  - Tinnitus [Recovered/Resolved]
  - Dizziness [Unknown]
  - Heart rate increased [Recovered/Resolved]
  - Breast pain [Unknown]
  - Vomiting [Unknown]
  - Arrhythmia [Recovered/Resolved]
  - Headache [Recovered/Resolved]
  - Influenza [Recovered/Resolved]
  - Device dislocation [Unknown]
  - Retching [Recovered/Resolved]
  - Nausea [Unknown]
  - Pyrexia [Recovering/Resolving]
  - Dysphonia [Unknown]
  - Hypokinesia [Unknown]
  - Malaise [Not Recovered/Not Resolved]
  - Hypoaesthesia [Recovered/Resolved]
  - Angina pectoris [Recovered/Resolved]
  - Breath sounds abnormal [Recovered/Resolved]

NARRATIVE: CASE EVENT DATE: 2014
